FAERS Safety Report 15911344 (Version 1)
Quarter: 2019Q1

REPORT INFORMATION
  Report Type: Spontaneous
  Country: US (occurrence: US)
  Receive Date: 20190204
  Receipt Date: 20190204
  Transmission Date: 20190417
  Serious: No
  Sender: FDA-Public Use
  Company Number: US-ABBVIE-18K-163-2333649-00

PATIENT
  Sex: Female

DRUGS (3)
  1. ELECAR [Concomitant]
     Indication: PRODUCT USED FOR UNKNOWN INDICATION
  2. ENTYVIO [Concomitant]
     Active Substance: VEDOLIZUMAB
     Indication: PRODUCT USED FOR UNKNOWN INDICATION
     Dates: start: 20180423
  3. HUMIRA [Suspect]
     Active Substance: ADALIMUMAB
     Indication: PRODUCT USED FOR UNKNOWN INDICATION
     Route: 058

REACTIONS (3)
  - Malabsorption [Unknown]
  - Drug level increased [Unknown]
  - Drug ineffective [Unknown]
